FAERS Safety Report 25307419 (Version 1)
Quarter: 2025Q2

REPORT INFORMATION
  Report Type: Spontaneous
  Country: IT (occurrence: IT)
  Receive Date: 20250513
  Receipt Date: 20250513
  Transmission Date: 20250716
  Serious: Yes (Other)
  Sender: ALCON
  Company Number: IT-SANMEDPRD-2025-ITA-004916

PATIENT

DRUGS (2)
  1. HYALURONATE SODIUM [Suspect]
     Active Substance: HYALURONATE SODIUM
     Indication: Product used for unknown indication
     Route: 065
  2. LATANOPROST\NETARSUDIL MESYLATE [Suspect]
     Active Substance: LATANOPROST\NETARSUDIL MESYLATE
     Indication: Glaucoma
     Route: 047

REACTIONS (3)
  - Ulcerative keratitis [Unknown]
  - Cornea verticillata [Unknown]
  - Pseudophakia [Unknown]
